FAERS Safety Report 24280750 (Version 1)
Quarter: 2024Q3

REPORT INFORMATION
  Report Type: Spontaneous
  Country: IT (occurrence: IT)
  Receive Date: 20240904
  Receipt Date: 20240904
  Transmission Date: 20241016
  Serious: Yes (Life-Threatening, Hospitalization, Other)
  Sender: HIKMA
  Company Number: IT-MLMSERVICE-20240814-PI161781-00117-1

PATIENT
  Age: 6 Year
  Sex: Male

DRUGS (4)
  1. ASPARAGINASE [Suspect]
     Active Substance: ASPARAGINASE
     Indication: B precursor type acute leukaemia
     Dosage: 2500 UI/MQ DAY 8
     Route: 065
     Dates: start: 202210, end: 202210
  2. DEXAMETHASONE [Suspect]
     Active Substance: DEXAMETHASONE
     Indication: B precursor type acute leukaemia
     Dosage: 20 MG/MQ FROM DAY 1 TO DAY 21
     Route: 065
     Dates: start: 202210, end: 202210
  3. DOXORUBICIN [Suspect]
     Active Substance: DOXORUBICIN
     Indication: B precursor type acute leukaemia
     Dosage: 30 MG/MQ DAYS 8-15-22-29
     Route: 065
     Dates: start: 202210, end: 202210
  4. VINCRISTINE [Suspect]
     Active Substance: VINCRISTINE
     Indication: B precursor type acute leukaemia
     Dosage: 1.5 MG/MQ DAYS 8-15-22-29
     Route: 065
     Dates: start: 202210, end: 202210

REACTIONS (5)
  - Status epilepticus [Recovered/Resolved]
  - Posterior reversible encephalopathy syndrome [Recovered/Resolved]
  - Herpes zoster meningoencephalitis [Recovered/Resolved]
  - Infection reactivation [Recovered/Resolved]
  - Rash pustular [Recovered/Resolved]

NARRATIVE: CASE EVENT DATE: 20221001
